FAERS Safety Report 9381527 (Version 1)
Quarter: 2013Q3

REPORT INFORMATION
  Report Type: Spontaneous
  Country: US (occurrence: US)
  Receive Date: 20130703
  Receipt Date: 20130703
  Transmission Date: 20140515
  Serious: Yes (Death, Disabling)
  Sender: FDA-Public Use
  Company Number: US-ROXANE LABORATORIES, INC.-2013-RO-01068RO

PATIENT
  Age: 28 Year
  Sex: Male

DRUGS (2)
  1. ALPRAZOLAM INTENSOL [ORAL SOLUTION (CONCENTRATE)] 1 MG/ML [Suspect]
  2. HEROIN [Suspect]

REACTIONS (5)
  - Overdose [Fatal]
  - Chorea [Recovered/Resolved with Sequelae]
  - Dystonia [Not Recovered/Not Resolved]
  - Central nervous system lesion [Unknown]
  - Brain injury [Unknown]
